FAERS Safety Report 16651287 (Version 1)
Quarter: 2019Q3

REPORT INFORMATION
  Report Type: Spontaneous
  Country: US (occurrence: US)
  Receive Date: 20190731
  Receipt Date: 20190731
  Transmission Date: 20191004
  Serious: Yes (Other)
  Sender: FDA-Public Use
  Company Number: US-SA-2019SA203223

PATIENT
  Sex: Male

DRUGS (5)
  1. METFORMIN HCL [Concomitant]
     Active Substance: METFORMIN HYDROCHLORIDE
     Dosage: 2 DF, QD
     Route: 048
  2. LEVOTHYROXINE SODIUM. [Concomitant]
     Active Substance: LEVOTHYROXINE SODIUM
     Dosage: 1 DF, QD
     Route: 048
  3. SIMVASTATIN. [Concomitant]
     Active Substance: SIMVASTATIN
     Dosage: 1 DF, QD
     Route: 048
  4. LANTUS [Suspect]
     Active Substance: INSULIN GLARGINE
     Dosage: UNK
     Route: 065
  5. ASPIRIN [ACETYLSALICYLIC ACID] [Concomitant]
     Active Substance: ASPIRIN
     Dosage: 2 DF, QD
     Route: 048

REACTIONS (2)
  - Chronic lymphocytic leukaemia [Unknown]
  - Weight decreased [Unknown]
